FAERS Safety Report 5644886-1 (Version None)
Quarter: 2008Q1

REPORT INFORMATION
  Report Type: 
  Country: None (occurrence: None)
  Receive Date: 20080229
  Receipt Date: 20071001
  Transmission Date: 20080703
  Serious: No
  Sender: FDA-Public Use
  Company Number: A0685993A

PATIENT
  Age: 61 Year
  Sex: Female

DRUGS (1)
  1. VALTREX [Suspect]
     Indication: IMMUNOSUPPRESSANT DRUG THERAPY
     Dosage: 250MG PER DAY
     Route: 065

REACTIONS (3)
  - BLOOD POTASSIUM INCREASED [None]
  - DIZZINESS [None]
  - PALPITATIONS [None]
